FAERS Safety Report 9283292 (Version 2)
Quarter: 2013Q2

REPORT INFORMATION
  Report Type: Spontaneous
  Country: AU (occurrence: None)
  Receive Date: 20130503
  Receipt Date: 20130612
  Transmission Date: 20140414
  Serious: Yes (Hospitalization)
  Sender: FDA-Public Use
  Company Number: ACO_35818_2013

PATIENT
  Age: 50 Year
  Sex: Female

DRUGS (4)
  1. FAMPRIDINE-SR (FAMPRIDINE) TABLET [Suspect]
     Indication: MULTIPLE SCLEROSIS
     Route: 048
     Dates: start: 20120412, end: 20130110
  2. CIPRAMIL (CITALOPRAM HYDROBROMIDE) [Concomitant]
  3. VITAMIN D (COLECALCIFEROL) [Concomitant]
  4. MULTIVITAMINS (ASCORBIC ACID, ERGOCALCIFEROL, FOLIC ACID, NICTOTINAMIDE, PANTHENOL, RETINOL, RIBOFLAVIN, THIAMINE HYDROCHLORIDE) [Concomitant]

REACTIONS (4)
  - Wrist fracture [None]
  - Fall [None]
  - Impaired healing [None]
  - Drug dose omission [None]
